FAERS Safety Report 9092994 (Version 1)
Quarter: 2013Q1

REPORT INFORMATION
  Report Type: Report from Study
  Country: US (occurrence: US)
  Receive Date: 20130131
  Receipt Date: 20130131
  Transmission Date: 20140127
  Serious: No
  Sender: FDA-Public Use
  Company Number: US-ABBOTT-12P-163-0999782-00

PATIENT
  Sex: Female
  Weight: 19.07 kg

DRUGS (6)
  1. HUMIRA [Suspect]
     Indication: UVEITIS
     Dates: start: 201209, end: 20120925
  2. HUMIRA [Suspect]
     Dates: start: 20121009
  3. METHOTREXATE [Concomitant]
     Indication: UVEITIS
  4. FOLIC ACID [Concomitant]
     Indication: UVEITIS
  5. ZANTAC [Concomitant]
     Indication: GASTRIC DISORDER
  6. PREDNISONE [Concomitant]
     Indication: UVEITIS

REACTIONS (1)
  - Off label use [Not Recovered/Not Resolved]
